FAERS Safety Report 11707006 (Version 2)
Quarter: 2015Q4

REPORT INFORMATION
  Report Type: Spontaneous
  Country: US (occurrence: US)
  Receive Date: 20151104
  Receipt Date: 20151110
  Transmission Date: 20160304
  Serious: No
  Sender: FDA-Public Use
  Company Number: US-ELI_LILLY_AND_COMPANY-US201101000729

PATIENT
  Sex: Female
  Weight: 51.7 kg

DRUGS (4)
  1. FORTEO [Suspect]
     Active Substance: TERIPARATIDE
     Indication: OSTEOPOROSIS
     Dosage: 20 UG, DAILY (1/D)
  2. NUTROPIN [Concomitant]
     Active Substance: SOMATROPIN
     Indication: BRAIN INJURY
     Dosage: 20 UG, DAILY (1/D)
  3. CALCIUM [Concomitant]
     Active Substance: CALCIUM
  4. FORTEO [Suspect]
     Active Substance: TERIPARATIDE
     Dosage: 20 UG, DAILY (1/D)

REACTIONS (15)
  - Pain [Not Recovered/Not Resolved]
  - Blood calcium increased [Recovered/Resolved]
  - Asthenia [Not Recovered/Not Resolved]
  - Fatigue [Recovered/Resolved]
  - Feeling abnormal [Unknown]
  - Arthralgia [Not Recovered/Not Resolved]
  - Balance disorder [Unknown]
  - Headache [Recovered/Resolved]
  - Hypophagia [Unknown]
  - Pain in extremity [Unknown]
  - Nausea [Recovered/Resolved]
  - Muscle spasms [Recovered/Resolved]
  - Neck pain [Unknown]
  - Back pain [Unknown]
  - Bone pain [Recovered/Resolved]
